FAERS Safety Report 8078342-0 (Version None)
Quarter: 2012Q1

REPORT INFORMATION
  Report Type: 
  Country: None (occurrence: None)
  Receive Date: 20120127
  Receipt Date: 20110323
  Transmission Date: 20120608
  Serious: No
  Sender: FDA-Public Use
  Company Number: US-ABBOTT-10P-163-0628076-00

PATIENT
  Sex: Female
  Weight: 59.928 kg

DRUGS (4)
  1. CIPROFLOXACIN [Suspect]
     Dates: start: 20091201
  2. CIPROFLOXACIN [Suspect]
     Indication: ABSCESS
  3. HUMIRA [Suspect]
  4. HUMIRA [Suspect]
     Indication: CROHN'S DISEASE
     Dates: start: 20090101, end: 20100110

REACTIONS (6)
  - MUSCLE SPASMS [None]
  - PARAESTHESIA ORAL [None]
  - PARAESTHESIA [None]
  - CROHN'S DISEASE [None]
  - PERIPHERAL COLDNESS [None]
  - HYPOAESTHESIA [None]
